FAERS Safety Report 24009570 (Version 1)
Quarter: 2024Q2

REPORT INFORMATION
  Report Type: Spontaneous
  Country: CN (occurrence: CN)
  Receive Date: 20240625
  Receipt Date: 20240625
  Transmission Date: 20240715
  Serious: Yes (Hospitalization, Other)
  Sender: FDA-Public Use
  Company Number: None

PATIENT
  Age: 70 Year
  Sex: Female
  Weight: 52 kg

DRUGS (15)
  1. CYCLOPHOSPHAMIDE [Suspect]
     Active Substance: CYCLOPHOSPHAMIDE
     Indication: Drug therapy
     Dosage: 800 MG (600 MG/M2), ONE TIME IN ONE DAY, D1, REDUCED BY 10% DUE TO ELDERLY AGE, AS A PART OF EC REGI
     Route: 041
     Dates: start: 20240403, end: 20240403
  2. CYCLOPHOSPHAMIDE [Suspect]
     Active Substance: CYCLOPHOSPHAMIDE
     Indication: Metastases to chest wall
  3. CYCLOPHOSPHAMIDE [Suspect]
     Active Substance: CYCLOPHOSPHAMIDE
     Indication: Invasive breast carcinoma
  4. CYCLOPHOSPHAMIDE [Suspect]
     Active Substance: CYCLOPHOSPHAMIDE
     Indication: Breast cancer stage IV
  5. CYCLOPHOSPHAMIDE [Suspect]
     Active Substance: CYCLOPHOSPHAMIDE
     Indication: Hormone receptor positive breast cancer
  6. DEXRAZOXANE [Suspect]
     Active Substance: DEXRAZOXANE
     Indication: Adjuvant therapy
     Dosage: 750 MG, ONE TIME IN ONE DAY
     Route: 041
     Dates: start: 20240403, end: 20240403
  7. DEXRAZOXANE [Suspect]
     Active Substance: DEXRAZOXANE
     Indication: Metastases to chest wall
  8. DEXRAZOXANE [Suspect]
     Active Substance: DEXRAZOXANE
     Indication: Invasive breast carcinoma
  9. DEXRAZOXANE [Suspect]
     Active Substance: DEXRAZOXANE
     Indication: Breast cancer stage IV
  10. DEXRAZOXANE [Suspect]
     Active Substance: DEXRAZOXANE
     Indication: Hormone receptor positive breast cancer
  11. PIRARUBICIN [Suspect]
     Active Substance: PIRARUBICIN
     Indication: Drug therapy
     Dosage: 66 MG (50 MG/M2), ONE TIME IN ONE DAY, D1, REDUCED BY 10% DUE TO ELDERLY AGE, AS A PART OF EC REGIME
     Route: 041
     Dates: start: 20240403, end: 20240403
  12. PIRARUBICIN [Suspect]
     Active Substance: PIRARUBICIN
     Indication: Metastases to chest wall
  13. PIRARUBICIN [Suspect]
     Active Substance: PIRARUBICIN
     Indication: Invasive breast carcinoma
  14. PIRARUBICIN [Suspect]
     Active Substance: PIRARUBICIN
     Indication: Breast cancer stage IV
  15. PIRARUBICIN [Suspect]
     Active Substance: PIRARUBICIN
     Indication: Hormone receptor positive breast cancer

REACTIONS (8)
  - Metastases to chest wall [Unknown]
  - Invasive breast carcinoma [Unknown]
  - Breast cancer stage IV [Unknown]
  - Hormone receptor positive breast cancer [Unknown]
  - Condition aggravated [Unknown]
  - Myelosuppression [Recovering/Resolving]
  - Infection [Recovering/Resolving]
  - Pyrexia [Unknown]

NARRATIVE: CASE EVENT DATE: 20240414
